FAERS Safety Report 10372103 (Version 1)
Quarter: 2014Q3

REPORT INFORMATION
  Report Type: Spontaneous
  Country: AU (occurrence: AU)
  Receive Date: 20140808
  Receipt Date: 20140808
  Transmission Date: 20150326
  Serious: Yes (Hospitalization)
  Sender: FDA-Public Use
  Company Number: AU-JNJFOC-20140720359

PATIENT
  Age: 58 Year
  Sex: Male

DRUGS (1)
  1. CLADRIBINE. [Suspect]
     Active Substance: CLADRIBINE
     Indication: ASTROCYTOMA
     Dosage: OVER 5 DAYS
     Route: 065

REACTIONS (3)
  - Off label use [Unknown]
  - Colonic abscess [Unknown]
  - Adverse event [Unknown]
